FAERS Safety Report 16551652 (Version 1)
Quarter: 2019Q3

REPORT INFORMATION
  Report Type: Spontaneous
  Country: US (occurrence: US)
  Receive Date: 20190710
  Receipt Date: 20190710
  Transmission Date: 20191004
  Serious: Yes (Other)
  Sender: FDA-Public Use
  Company Number: US-PFIZER INC-2018409703

PATIENT
  Age: 70 Year
  Sex: Male

DRUGS (1)
  1. LYRICA [Suspect]
     Active Substance: PREGABALIN
     Indication: DIABETIC NEUROPATHY
     Dosage: 150 MG, 3X/DAY (TAKE 1 CAP BY MOUTH THREE TIMES A DAY)
     Route: 048
     Dates: start: 20180709

REACTIONS (3)
  - Off label use [Unknown]
  - Product use issue [Unknown]
  - Mental impairment [Unknown]

NARRATIVE: CASE EVENT DATE: 20180709
